FAERS Safety Report 10790664 (Version 1)
Quarter: 2015Q1

REPORT INFORMATION
  Report Type: Report from Study
  Country: ES (occurrence: ES)
  Receive Date: 20150212
  Receipt Date: 20150212
  Transmission Date: 20150721
  Serious: Yes (Hospitalization)
  Sender: FDA-Public Use
  Company Number: ES-PFIZER INC-2015053241

PATIENT
  Age: 85 Year
  Sex: Female

DRUGS (3)
  1. HIDROCLOROTIAZIDE [Interacting]
     Active Substance: HYDROCHLOROTHIAZIDE
     Indication: CHRONIC KIDNEY DISEASE
     Dosage: 12.5 MG, 1X/DAY
     Route: 048
     Dates: start: 2011, end: 20110525
  2. FUROSEMIDE. [Interacting]
     Active Substance: FUROSEMIDE
     Indication: CHRONIC KIDNEY DISEASE
     Dosage: 30 MG, 2X/DAY
     Route: 048
     Dates: start: 20110511, end: 20110525
  3. ALDACTONE [Suspect]
     Active Substance: SPIRONOLACTONE
     Indication: CHRONIC KIDNEY DISEASE
     Dosage: 25 MG, 1X/DAY
     Route: 048
     Dates: start: 2011, end: 20110525

REACTIONS (4)
  - Disorientation [Recovered/Resolved]
  - Bradyphrenia [Recovered/Resolved]
  - Hyponatraemia [Recovered/Resolved]
  - Drug interaction [Recovered/Resolved]

NARRATIVE: CASE EVENT DATE: 20110525
